FAERS Safety Report 9105192 (Version 1)
Quarter: 2013Q1

REPORT INFORMATION
  Report Type: Spontaneous
  Country: US (occurrence: US)
  Receive Date: 20130220
  Receipt Date: 20130220
  Transmission Date: 20140127
  Serious: Yes (Other)
  Sender: FDA-Public Use
  Company Number: US-PFIZER INC-2013061272

PATIENT
  Sex: Female

DRUGS (3)
  1. LEVOXYL [Suspect]
     Indication: HYPOTHYROIDISM
     Dosage: 50 UG, 1X/DAY
     Route: 048
     Dates: end: 20130204
  2. MINOCYCLINE [Concomitant]
     Indication: ACNE
     Dosage: 100 MG, 1X/DAY
  3. VICODIN [Concomitant]
     Indication: FIBROMYALGIA
     Dosage: 5/500 MG, UNK

REACTIONS (9)
  - Product quality issue [Unknown]
  - Diarrhoea haemorrhagic [Recovering/Resolving]
  - Gastrointestinal disorder [Recovering/Resolving]
  - Urticaria [Recovering/Resolving]
  - Dyspnoea [Recovering/Resolving]
  - Abdominal pain [Recovering/Resolving]
  - Abdominal distension [Recovering/Resolving]
  - Depressed mood [Recovering/Resolving]
  - Fatigue [Recovering/Resolving]
